FAERS Safety Report 10180710 (Version 1)
Quarter: 2014Q2

REPORT INFORMATION
  Report Type: Spontaneous
  Country: US (occurrence: US)
  Receive Date: 20140519
  Receipt Date: 20140519
  Transmission Date: 20141212
  Serious: No
  Sender: FDA-Public Use
  Company Number: US-AMGEN INC.-USASP2014018024

PATIENT
  Age: 89 Year
  Sex: Female

DRUGS (4)
  1. PROLIA [Suspect]
     Indication: OSTEOPOROSIS POSTMENOPAUSAL
     Dosage: UNK
     Route: 065
     Dates: start: 201301
  2. BABY ASPIRIN [Concomitant]
  3. VITAMINS                           /00067501/ [Concomitant]
  4. LEVOTHYROXINE [Concomitant]

REACTIONS (6)
  - Tooth disorder [Unknown]
  - Pain in jaw [Unknown]
  - Gingival pain [Unknown]
  - Gingival disorder [Unknown]
  - Salivary hypersecretion [Unknown]
  - Skin disorder [Unknown]
